FAERS Safety Report 4591060-6 (Version None)
Quarter: 2005Q1

REPORT INFORMATION
  Report Type: 
  Country: None (occurrence: None)
  Receive Date: 20050222
  Receipt Date: 20050222
  Transmission Date: 20050727
  Serious: Yes (Hospitalization)
  Sender: FDA-Public Use
  Company Number: None

PATIENT
  Age: 49 Year
  Sex: Female
  Weight: 69.7 kg

DRUGS (6)
  1. DOCETAXEL [Suspect]
     Indication: BREAST CANCER
     Dosage: 138 MG X1 INTRAVENOUS
     Route: 042
     Dates: start: 20050216, end: 20050216
  2. GEMCITABINE [Suspect]
     Indication: BREAST CANCER
     Dosage: 1850 MG  X1 INTRAVENOUS
     Route: 042
     Dates: start: 20050216, end: 20050216
  3. DEXAMETHASONE [Concomitant]
  4. DOLASETRON [Concomitant]
  5. COMPAZINE [Concomitant]
  6. LORAZEPAM [Concomitant]

REACTIONS (5)
  - DYSPNOEA [None]
  - HYPOXIA [None]
  - PULMONARY EMBOLISM [None]
  - TACHYCARDIA [None]
  - TACHYPNOEA [None]
